FAERS Safety Report 6616864-7 (Version None)
Quarter: 2010Q1

REPORT INFORMATION
  Report Type: 
  Country: None (occurrence: None)
  Receive Date: 20100301
  Receipt Date: 20100217
  Transmission Date: 20100710
  Serious: Yes (Death, Hospitalization)
  Sender: FDA-Public Use
  Company Number: 2009-04600

PATIENT
  Age: 53 Year
  Sex: Female
  Weight: 118.9 kg

DRUGS (17)
  1. VELCADE [Suspect]
     Indication: DIFFUSE LARGE B-CELL LYMPHOMA
     Dosage: 1.3 MG/M2, CYCLIC, IV BOLUS
     Route: 040
     Dates: start: 20090824, end: 20090924
  2. VORINOSTAT (VORINOSTAT) ORAL DRUG UNSPECIFIED FORM [Suspect]
     Indication: DIFFUSE LARGE B-CELL LYMPHOMA
     Dosage: 400 MG, CYCLIC, ORAL
     Route: 048
     Dates: start: 20090824, end: 20090925
  3. OXYCODONE HCL [Concomitant]
  4. CEPHALEXIN  /00145501/(CEFALEXIN) [Concomitant]
  5. ALLOPURINOL [Concomitant]
  6. LIDODERM [Concomitant]
  7. HYCOR (HYDROCORTISONE ACETATE) [Concomitant]
  8. LIDOCAINE [Concomitant]
  9. NYSTATIN [Concomitant]
  10. VALACYCLOVIR [Concomitant]
  11. XENADERM (MYROXYLON BALSAMUM VAR. PEREIRAE BALSAM, RICINUS COMMUNIS OI [Concomitant]
  12. IMODIUM  	/00384302/ (LOPERAMIDE HYDROCHLORIDE) [Concomitant]
  13. DIPHENHYDRAMINE HCL [Concomitant]
  14. NEXIUM [Concomitant]
  15. COLACE (DOCUSATE SODIUM) [Concomitant]
  16. SENNA /00142201/ (SENNA ALEXANDRINA) [Concomitant]
  17. HYDROXYZINE HCL [Concomitant]

REACTIONS (18)
  - ACUTE RESPIRATORY FAILURE [None]
  - ASPIRATION [None]
  - BLOOD CULTURE POSITIVE [None]
  - CARDIAC ARREST [None]
  - CORONARY ARTERY DISEASE [None]
  - DIFFUSE LARGE B-CELL LYMPHOMA [None]
  - ESCHERICHIA INFECTION [None]
  - HEART RATE INCREASED [None]
  - HYPOTENSION [None]
  - MALIGNANT NEOPLASM PROGRESSION [None]
  - MULTI-ORGAN FAILURE [None]
  - NEUTROPHIL COUNT ABNORMAL [None]
  - PSEUDOMONAS INFECTION [None]
  - PULMONARY EMBOLISM [None]
  - RENAL FAILURE ACUTE [None]
  - RESPIRATORY DISTRESS [None]
  - UROSEPSIS [None]
  - WHITE BLOOD CELL COUNT ABNORMAL [None]
